FAERS Safety Report 6293560-X (Version None)
Quarter: 2009Q3

REPORT INFORMATION
  Report Type: 
  Country: None (occurrence: None)
  Receive Date: 20090803
  Receipt Date: 20090729
  Transmission Date: 20100115
  Serious: Yes (Hospitalization)
  Sender: FDA-Public Use
  Company Number: FR-BRISTOL-MYERS SQUIBB COMPANY-14721930

PATIENT
  Age: 50 Year
  Sex: Female

DRUGS (11)
  1. COAPROVEL TABS 150MG/12.5MG [Suspect]
  2. MODITEN [Suspect]
     Dates: start: 20081108
  3. LITHIUM CARBONATE [Suspect]
     Dosage: TERALITHE LP 400MG 1 DOSAGE FORM = 1.5
  4. TERCIAN [Suspect]
     Dosage: STRENGTH = 40MG/ML
     Dates: start: 20081108, end: 20081111
  5. RIVOTRIL [Suspect]
     Dosage: STRENGTH= 2.5MG/ML
     Dates: start: 20081108, end: 20081111
  6. MODECATE [Concomitant]
     Dosage: 1 DF= 25MG/ML
     Route: 030
     Dates: start: 20081125
  7. LEPTICUR [Concomitant]
     Dosage: LEPTICUR PARK
  8. CARDENSIEL [Concomitant]
  9. POLYETHYLENE GLYCOL [Concomitant]
     Dosage: MACROGOL 4000
  10. AUGMENTIN [Concomitant]
  11. TARDYFERON [Concomitant]

REACTIONS (1)
  - COMA [None]
